FAERS Safety Report 9187496 (Version 1)
Quarter: 2013Q1

REPORT INFORMATION
  Report Type: Spontaneous
  Country: US (occurrence: US)
  Receive Date: 20130325
  Receipt Date: 20130325
  Transmission Date: 20140127
  Serious: No
  Sender: FDA-Public Use
  Company Number: US-JNJFOC-20130309526

PATIENT
  Sex: Female
  Weight: 54.43 kg

DRUGS (2)
  1. INVEGA SUSTENNA [Suspect]
     Indication: BIPOLAR DISORDER
     Route: 030
     Dates: start: 201302, end: 201302
  2. LITHIUM [Suspect]
     Indication: BIPOLAR DISORDER
     Route: 065
     Dates: start: 201302, end: 201302

REACTIONS (6)
  - Feeling abnormal [Recovering/Resolving]
  - Logorrhoea [Recovering/Resolving]
  - Withdrawal syndrome [Recovering/Resolving]
  - Treatment noncompliance [Not Recovered/Not Resolved]
  - Elevated mood [Recovering/Resolving]
  - Off label use [Recovered/Resolved]
